FAERS Safety Report 19486103 (Version 1)
Quarter: 2021Q3

REPORT INFORMATION
  Report Type: Spontaneous
  Country: IN (occurrence: IN)
  Receive Date: 20210702
  Receipt Date: 20210702
  Transmission Date: 20211014
  Serious: Yes (Death)
  Sender: FDA-Public Use
  Company Number: IN-PFIZER INC-2021133386

PATIENT
  Age: 58 Year
  Sex: Female

DRUGS (1)
  1. PALBACE [Suspect]
     Active Substance: PALBOCICLIB
     Indication: BREAST CANCER METASTATIC
     Dosage: 125 MG, ONCE A DAY
     Route: 048
     Dates: start: 20201125

REACTIONS (9)
  - COVID-19 [Fatal]
  - Nausea [Recovered/Resolved]
  - Stomatitis [Recovered/Resolved]
  - Jaundice [Recovered/Resolved]
  - Rash [Unknown]
  - Oropharyngeal pain [Recovered/Resolved]
  - Neoplasm progression [Unknown]
  - Epistaxis [Unknown]
  - Platelet count decreased [Unknown]

NARRATIVE: CASE EVENT DATE: 2021
